FAERS Safety Report 4948800-3 (Version None)
Quarter: 2006Q1

REPORT INFORMATION
  Report Type: 
  Country: None (occurrence: None)
  Receive Date: 20060321
  Receipt Date: 20060314
  Transmission Date: 20060701
  Serious: Yes (Other)
  Sender: FDA-Public Use
  Company Number: PHBS2006BE03937

PATIENT
  Age: 7 Year
  Sex: Female

DRUGS (4)
  1. RITALIN LA [Suspect]
     Indication: ATTENTION DEFICIT/HYPERACTIVITY DISORDER
     Dosage: UNK, UNK
     Route: 048
     Dates: start: 20051201, end: 20060301
  2. RITALIN [Suspect]
     Indication: ATTENTION DEFICIT/HYPERACTIVITY DISORDER
     Route: 048
     Dates: start: 20020318, end: 20030101
  3. RITALIN [Suspect]
     Route: 048
     Dates: start: 20050101, end: 20051201
  4. RITALIN [Suspect]
     Route: 065
     Dates: start: 20060301

REACTIONS (1)
  - SUICIDAL IDEATION [None]
